FAERS Safety Report 23877552 (Version 3)
Quarter: 2024Q2

REPORT INFORMATION
  Report Type: Spontaneous
  Country: US (occurrence: US)
  Receive Date: 20240521
  Receipt Date: 20240603
  Transmission Date: 20240716
  Serious: No
  Sender: FDA-Public Use
  Company Number: US-AMGEN-USASP2024098591

PATIENT
  Age: 59 Year
  Sex: Female

DRUGS (2)
  1. REPATHA [Suspect]
     Active Substance: EVOLOCUMAB
     Indication: Product used for unknown indication
     Dosage: UNK (140 MILLIGRAM)
     Route: 065
  2. REPATHA [Suspect]
     Active Substance: EVOLOCUMAB
     Dosage: UNK (140 MILLIGRAM)
     Route: 065

REACTIONS (7)
  - Device difficult to use [Unknown]
  - Drug dose omission by device [Unknown]
  - Device use error [Unknown]
  - Accidental exposure to product [Unknown]
  - Ill-defined disorder [Unknown]
  - Hepatic enzyme abnormal [Unknown]
  - Renal disorder [Unknown]

NARRATIVE: CASE EVENT DATE: 20230101
